FAERS Safety Report 21886037 (Version 1)
Quarter: 2023Q1

REPORT INFORMATION
  Report Type: Spontaneous
  Country: US (occurrence: None)
  Receive Date: 20230118
  Receipt Date: 20230118
  Transmission Date: 20230418
  Serious: Yes (Life-Threatening, Hospitalization, Disabling, Other)
  Sender: FDA-Public Use
  Company Number: None

PATIENT
  Age: 44 Year
  Sex: Female
  Weight: 54 kg

DRUGS (4)
  1. ZYPREXA [Suspect]
     Active Substance: OLANZAPINE
     Dates: start: 20221209, end: 20221216
  2. HYDROCORTISONE [Concomitant]
  3. FLUDROCORTISONE [Concomitant]
     Active Substance: FLUDROCORTISONE
  4. SYNTHROID [Concomitant]
     Active Substance: LEVOTHYROXINE SODIUM

REACTIONS (33)
  - Seizure [None]
  - Conversion disorder [None]
  - Fall [None]
  - Injury [None]
  - Pain [None]
  - Depressed level of consciousness [None]
  - Malaise [None]
  - Craniocerebral injury [None]
  - Eye movement disorder [None]
  - Nervous system disorder [None]
  - Balance disorder [None]
  - Mental disorder [None]
  - Asthenia [None]
  - Shock [None]
  - Paralysis [None]
  - Dyspnoea [None]
  - Musculoskeletal stiffness [None]
  - Pain [None]
  - Joint injury [None]
  - Pallor [None]
  - Fatigue [None]
  - Blood pressure increased [None]
  - Dyskinesia [None]
  - Tardive dyskinesia [None]
  - Dyskinesia [None]
  - Dizziness [None]
  - Dizziness [None]
  - Syncope [None]
  - Decreased immune responsiveness [None]
  - Infection [None]
  - Back pain [None]
  - Flank pain [None]
  - Dysuria [None]

NARRATIVE: CASE EVENT DATE: 20221209
